FAERS Safety Report 24025352 (Version 2)
Quarter: 2024Q3

REPORT INFORMATION
  Report Type: Report from Study
  Country: RO (occurrence: RO)
  Receive Date: 20240628
  Receipt Date: 20240710
  Transmission Date: 20241017
  Serious: No
  Sender: ROCHE
  Company Number: RO-ROCHE-3399551

PATIENT
  Age: 62 Year
  Sex: Female
  Weight: 74.0 kg

DRUGS (1)
  1. PHESGO [Suspect]
     Active Substance: HYALURONIDASE-ZZXF\PERTUZUMAB\TRASTUZUMAB
     Indication: Breast neoplasm
     Dosage: IN THE LEG, IN THE THIGH. TREATMENT START DATE: IN APRIL I STARTED THE FIRST TIME
     Route: 042

REACTIONS (2)
  - Off label use [Unknown]
  - Memory impairment [Unknown]
